FAERS Safety Report 11220410 (Version 1)
Quarter: 2015Q2

REPORT INFORMATION
  Report Type: Spontaneous
  Country: US (occurrence: None)
  Receive Date: 20150625
  Receipt Date: 20150625
  Transmission Date: 20150821
  Serious: Yes (Hospitalization)
  Sender: FDA-Public Use
  Company Number: None

PATIENT
  Age: 73 Year
  Sex: Male
  Weight: 82.4 kg

DRUGS (1)
  1. ALUMINUM HYDROXIDE/MAGNESIUM HYDROXIDE/SIMETHICONE [Suspect]
     Active Substance: ALUMINUM HYDROXIDE\MAGNESIUM HYDROXIDE\SIMETHICONE
     Dates: end: 20150604

REACTIONS (7)
  - Fatigue [None]
  - Constipation [None]
  - Dehydration [None]
  - Faecaloma [None]
  - Asthenia [None]
  - Anuria [None]
  - Urinary tract infection [None]

NARRATIVE: CASE EVENT DATE: 20150622
